FAERS Safety Report 9143609 (Version 3)
Quarter: 2014Q1

REPORT INFORMATION
  Report Type: Report from Study
  Country: US (occurrence: US)
  Receive Date: 20130306
  Receipt Date: 20140220
  Transmission Date: 20141002
  Serious: No
  Sender: FDA-Public Use
  Company Number: US-VERTEX PHARMACEUTICALS INC.-2013-003059

PATIENT
  Age: 8 Year
  Sex: Male

DRUGS (3)
  1. VX-770 [Suspect]
     Indication: CYSTIC FIBROSIS
     Dosage: 150 MG, BID
     Route: 048
     Dates: start: 20120622, end: 201208
  2. VX-770 [Suspect]
     Dosage: 150 MG, BID
     Dates: start: 20130107
  3. ITRACONAZOLE [Concomitant]
     Dosage: UNK
     Dates: start: 201208, end: 201212

REACTIONS (2)
  - Nasopharyngitis [Unknown]
  - Upper respiratory tract infection [Unknown]
